FAERS Safety Report 23721889 (Version 1)
Quarter: 2024Q2

REPORT INFORMATION
  Report Type: Spontaneous
  Country: US (occurrence: US)
  Receive Date: 20240409
  Receipt Date: 20240409
  Transmission Date: 20240716
  Serious: Yes (Other)
  Sender: FDA-Public Use
  Company Number: US-GLAXOSMITHKLINE-US2024AMR043169

PATIENT

DRUGS (1)
  1. ZEJULA [Suspect]
     Active Substance: NIRAPARIB
     Indication: Product used for unknown indication
     Dosage: 100 MG, QOD

REACTIONS (8)
  - Neuropathy peripheral [Unknown]
  - Alopecia [Unknown]
  - Fatigue [Unknown]
  - Dizziness [Unknown]
  - Nausea [Unknown]
  - Decreased appetite [Unknown]
  - Inappropriate schedule of product administration [Unknown]
  - Incorrect dose administered [Unknown]
